FAERS Safety Report 25702632 (Version 1)
Quarter: 2025Q3

REPORT INFORMATION
  Report Type: Spontaneous
  Country: US (occurrence: US)
  Receive Date: 20250819
  Receipt Date: 20250819
  Transmission Date: 20251020
  Serious: No
  Sender: REGENERON
  Company Number: US-REGENERON PHARMACEUTICALS, INC.-2025-084393

PATIENT
  Sex: Female

DRUGS (3)
  1. PRALUENT [Suspect]
     Active Substance: ALIROCUMAB
     Indication: Liver function test abnormal
     Dosage: 150 MG, Q2W (EVERY 14 DAYS) (STRENGTH: 150 MG/ML)
     Route: 058
  2. PRALUENT [Suspect]
     Active Substance: ALIROCUMAB
     Indication: Cardiac disorder
  3. NEXLETOL [Concomitant]
     Active Substance: BEMPEDOIC ACID
     Indication: Product used for unknown indication

REACTIONS (6)
  - Injection site mass [Unknown]
  - Injection site discharge [Unknown]
  - Lipids increased [Recovered/Resolved]
  - Injection site pain [Recovered/Resolved]
  - Product preparation error [Unknown]
  - Off label use [Unknown]

NARRATIVE: CASE EVENT DATE: 20240101
